FAERS Safety Report 5216754-0 (Version None)
Quarter: 2007Q1

REPORT INFORMATION
  Report Type: 
  Country: None (occurrence: None)
  Receive Date: 20070118
  Receipt Date: 20070111
  Transmission Date: 20070707
  Serious: Yes (Hospitalization)
  Sender: FDA-Public Use
  Company Number: 2007BI000778

PATIENT
  Age: 63 Year
  Sex: Male

DRUGS (1)
  1. AVONEX [Suspect]
     Indication: MULTIPLE SCLEROSIS
     Dosage: 30 UG; QW
     Dates: start: 20061020, end: 20061208

REACTIONS (9)
  - ARRHYTHMIA [None]
  - BONE PAIN [None]
  - CONDITION AGGRAVATED [None]
  - DEPRESSED MOOD [None]
  - GAIT DISTURBANCE [None]
  - INJECTION SITE PAIN [None]
  - PROSTATE CANCER [None]
  - TACHYCARDIA [None]
  - THROMBOSIS [None]
